FAERS Safety Report 17037555 (Version 1)
Quarter: 2019Q4

REPORT INFORMATION
  Report Type: Spontaneous
  Country: TR (occurrence: TR)
  Receive Date: 20191115
  Receipt Date: 20191115
  Transmission Date: 20200122
  Serious: Yes (Hospitalization)
  Sender: FDA-Public Use
  Company Number: NVSC2019TR029844

PATIENT
  Age: 37 Year
  Sex: Female

DRUGS (2)
  1. AMOXICILLIN SODIUM,POTASSIUM CLAVULANATE [Suspect]
     Active Substance: AMOXICILLIN\CLAVULANATE POTASSIUM
     Indication: OROPHARYNGEAL PAIN
     Dosage: 2000 MG, QD
     Route: 065
  2. AMOXICILLIN SODIUM,POTASSIUM CLAVULANATE [Suspect]
     Active Substance: AMOXICILLIN\CLAVULANATE POTASSIUM
     Indication: PYREXIA

REACTIONS (4)
  - Hypersensitivity vasculitis [Unknown]
  - Palpable purpura [Unknown]
  - Rash [Unknown]
  - Product use in unapproved indication [Unknown]
